FAERS Safety Report 5372335-X (Version None)
Quarter: 2007Q2

REPORT INFORMATION
  Report Type: 
  Country: None (occurrence: None)
  Receive Date: 20070620
  Receipt Date: 20070329
  Transmission Date: 20071010
  Serious: No
  Sender: FDA-Public Use
  Company Number: 2007RL000149

PATIENT
  Age: 68 Year
  Sex: Female

DRUGS (5)
  1. OMACOR [Suspect]
     Indication: BLOOD CHOLESTEROL INCREASED
     Dosage: 4 GM;QD;PO
     Route: 048
     Dates: start: 20070301
  2. VYTORIN [Suspect]
     Indication: DRUG USE FOR UNKNOWN INDICATION
     Dates: start: 20070301
  3. PREMARIN [Concomitant]
  4. L-CARNITINE [Concomitant]
  5. COENZYME Q10 [Concomitant]

REACTIONS (2)
  - DRUG INTERACTION [None]
  - FATIGUE [None]
